FAERS Safety Report 5418011-6 (Version None)
Quarter: 2007Q3

REPORT INFORMATION
  Report Type: 
  Country: None (occurrence: None)
  Receive Date: 20070817
  Receipt Date: 20070815
  Transmission Date: 20080115
  Serious: Yes (Death, Hospitalization, Disabling)
  Sender: FDA-Public Use
  Company Number: BR-SANOFI-SYNTHELABO-F01200701016

PATIENT
  Sex: Female

DRUGS (4)
  1. FLUOROURACIL [Suspect]
     Route: 042
  2. LEUCOVORIN CALCIUM [Suspect]
     Route: 042
  3. OXALIPLATIN [Suspect]
     Indication: COLORECTAL CANCER METASTATIC
     Route: 042
  4. BEVACIZUMAB [Suspect]
     Route: 042

REACTIONS (1)
  - BONE MARROW FAILURE [None]
